FAERS Safety Report 8997490 (Version 6)
Quarter: 2018Q2

REPORT INFORMATION
  Report Type: Spontaneous
  Country: US (occurrence: US)
  Receive Date: 20130104
  Receipt Date: 20180518
  Transmission Date: 20180711
  Serious: Yes (Hospitalization, Disabling, Other)
  Sender: FDA-Public Use
  Company Number: US-009507513-1301USA000743

PATIENT
  Sex: Female
  Weight: 59.86 kg

DRUGS (11)
  1. CALCIUM (UNSPECIFIED) (+) VITAMIN D (UNSPECIFIED) [Concomitant]
     Active Substance: CALCIUM CARBONATE\VITAMIN D
     Dosage: 1200 MG, QD
     Dates: start: 1990
  2. VIMOVO [Concomitant]
     Active Substance: ESOMEPRAZOLE MAGNESIUM\NAPROXEN
     Indication: GASTROOESOPHAGEAL REFLUX DISEASE
     Dosage: UNK
     Dates: start: 1993
  3. FOSAMAX [Suspect]
     Active Substance: ALENDRONATE SODIUM
     Indication: OSTEOPOROSIS
     Dosage: 70 MG, QW
     Route: 048
     Dates: end: 200708
  4. ESTRATEST H.S. [Concomitant]
     Indication: HORMONE REPLACEMENT THERAPY
     Dosage: 1 DF, HS
     Dates: start: 2003
  5. VITAMINS (UNSPECIFIED) [Concomitant]
     Active Substance: VITAMINS
     Dosage: 1 DF, QD
     Dates: start: 1990
  6. NEXIUM [Concomitant]
     Active Substance: ESOMEPRAZOLE MAGNESIUM
     Indication: GASTROOESOPHAGEAL REFLUX DISEASE
  7. COVARYX HS [Concomitant]
     Active Substance: ESTROGENS, ESTERIFIED\METHYLTESTOSTERONE
     Indication: HORMONE REPLACEMENT THERAPY
  8. ESTROGEL [Concomitant]
     Active Substance: ESTRADIOL
     Indication: HORMONE REPLACEMENT THERAPY
     Dosage: UNK
     Dates: start: 2004
  9. PREMARIN [Concomitant]
     Active Substance: ESTROGENS, CONJUGATED
     Indication: HORMONE REPLACEMENT THERAPY
     Dosage: UNK
     Dates: start: 199111, end: 2003
  10. FOSAMAX [Suspect]
     Active Substance: ALENDRONATE SODIUM
     Indication: OSTEOPENIA
     Dosage: 10 MG, QD
     Route: 048
     Dates: start: 2000
  11. NEXIUM [Concomitant]
     Active Substance: ESOMEPRAZOLE MAGNESIUM
     Indication: GASTROINTESTINAL DISORDER
     Dosage: 40 MG, QD
     Dates: start: 1990

REACTIONS (54)
  - Fracture delayed union [Unknown]
  - Impaired healing [Unknown]
  - Hypercholesterolaemia [Unknown]
  - Limb injury [Unknown]
  - Cystocele repair [Unknown]
  - Femur fracture [Unknown]
  - Rectocele [Unknown]
  - Spinal osteoarthritis [Unknown]
  - Axillary pain [Unknown]
  - Pain in extremity [Unknown]
  - Femur fracture [Recovered/Resolved]
  - Knee arthroplasty [Unknown]
  - Low turnover osteopathy [Not Recovered/Not Resolved]
  - Cystocele [Unknown]
  - Labyrinthitis [Unknown]
  - Blood calcium increased [Unknown]
  - Kyphosis [Unknown]
  - Upper limb fracture [Unknown]
  - Drug ineffective [Not Recovered/Not Resolved]
  - Femur fracture [Not Recovered/Not Resolved]
  - Femur fracture [Unknown]
  - Humerus fracture [Unknown]
  - Carpal tunnel decompression [Unknown]
  - Fall [Unknown]
  - Pain [Unknown]
  - Chondrocalcinosis [Unknown]
  - Osteoarthritis [Unknown]
  - Oesophageal disorder [Unknown]
  - Drug intolerance [Unknown]
  - Anxiety [Unknown]
  - Vertigo [Unknown]
  - Suicidal ideation [Not Recovered/Not Resolved]
  - Femur fracture [Not Recovered/Not Resolved]
  - Carpal tunnel decompression [Unknown]
  - Vaginal prolapse [Unknown]
  - Joint effusion [Unknown]
  - Depression [Unknown]
  - Arthralgia [Not Recovered/Not Resolved]
  - Femur fracture [Not Recovered/Not Resolved]
  - Stress fracture [Not Recovered/Not Resolved]
  - Femur fracture [Not Recovered/Not Resolved]
  - Osteoarthritis [Unknown]
  - Shoulder arthroplasty [Unknown]
  - Mammoplasty [Unknown]
  - Cystocele repair [Unknown]
  - Spinal pain [Unknown]
  - Femoral neck fracture [Not Recovered/Not Resolved]
  - Femur fracture [Unknown]
  - Osteoporosis [Not Recovered/Not Resolved]
  - Atrophy [Unknown]
  - Osteoporosis [Unknown]
  - Scoliosis [Unknown]
  - Blood phosphorus increased [Unknown]
  - Arthritis [Unknown]

NARRATIVE: CASE EVENT DATE: 2000
